FAERS Safety Report 9111092 (Version 1)
Quarter: 2013Q1

REPORT INFORMATION
  Report Type: Spontaneous
  Country: US (occurrence: US)
  Receive Date: 20130219
  Receipt Date: 20130219
  Transmission Date: 20140127
  Serious: No
  Sender: FDA-Public Use
  Company Number: US-BRISTOL-MYERS SQUIBB COMPANY-16600009

PATIENT
  Age: 64 Year
  Sex: Female

DRUGS (6)
  1. ORENCIA [Suspect]
     Route: 058
     Dates: start: 201205
  2. CLONIDINE [Concomitant]
  3. DOXEPIN [Concomitant]
     Dosage: B6 , B12, D3
  4. BABY ASPIRIN [Concomitant]
  5. PROBIOTICA [Concomitant]
  6. CLARITIN [Concomitant]

REACTIONS (1)
  - Hypertension [Unknown]
